FAERS Safety Report 18913855 (Version 1)
Quarter: 2021Q1

REPORT INFORMATION
  Report Type: Spontaneous
  Country: US (occurrence: US)
  Receive Date: 20210219
  Receipt Date: 20210219
  Transmission Date: 20210420
  Serious: No
  Sender: FDA-Public Use
  Company Number: US-009507513-2102USA006957

PATIENT
  Age: 28 Year
  Sex: Female
  Weight: 68.04 kg

DRUGS (2)
  1. NEXPLANON [Suspect]
     Active Substance: ETONOGESTREL
     Indication: CONTRACEPTION
     Dosage: 1 IMPLANT FOR 4 YEARS; LEFT ARM
     Route: 059
     Dates: start: 20210213
  2. FLUOXETINE [Concomitant]
     Active Substance: FLUOXETINE HYDROCHLORIDE
     Dosage: UNK

REACTIONS (1)
  - Implant site rash [Not Recovered/Not Resolved]

NARRATIVE: CASE EVENT DATE: 20210217
